FAERS Safety Report 10450522 (Version 1)
Quarter: 2014Q3

REPORT INFORMATION
  Report Type: Spontaneous
  Country: US (occurrence: None)
  Receive Date: 20140910
  Receipt Date: 20140910
  Transmission Date: 20150326
  Serious: No
  Sender: FDA-Public Use
  Company Number: 14004ADE

PATIENT
  Age: 66 Year
  Sex: Male

DRUGS (3)
  1. POTASSIUM CITRATE. [Suspect]
     Active Substance: POTASSIUM CITRATE
     Indication: NEPHROLITHIASIS
     Route: 048
     Dates: start: 2011
  2. ALLOPURINOL. [Concomitant]
     Active Substance: ALLOPURINOL
  3. ZOCOR [Concomitant]
     Active Substance: SIMVASTATIN

REACTIONS (3)
  - Medication residue present [None]
  - Haemorrhoids [None]
  - Product physical issue [None]

NARRATIVE: CASE EVENT DATE: 201310
